FAERS Safety Report 10348864 (Version 3)
Quarter: 2014Q3

REPORT INFORMATION
  Report Type: Spontaneous
  Country: US (occurrence: US)
  Receive Date: 20140729
  Receipt Date: 20140911
  Transmission Date: 20150326
  Serious: No
  Sender: FDA-Public Use
  Company Number: US-009507513-1407USA010557

PATIENT
  Age: 19 Year
  Sex: Female
  Weight: 119.27 kg

DRUGS (1)
  1. IMPLANON [Suspect]
     Active Substance: ETONOGESTREL
     Indication: CONTRACEPTION
     Dosage: UNK, IN THE SULCUS BICIPITALIS MEDIALIS(GROOVE BETWEEN BICEPS AND TRICEPS)
     Route: 059
     Dates: start: 20110722, end: 20140730

REACTIONS (4)
  - Weight increased [Not Recovered/Not Resolved]
  - Incorrect drug administration duration [Unknown]
  - Device dislocation [Recovered/Resolved]
  - Medical device complication [Recovered/Resolved]

NARRATIVE: CASE EVENT DATE: 20110727
